FAERS Safety Report 17869931 (Version 2)
Quarter: 2020Q3

REPORT INFORMATION
  Report Type: Report from Study
  Country: IT (occurrence: IT)
  Receive Date: 20200608
  Receipt Date: 20200828
  Transmission Date: 20201103
  Serious: Yes (Other)
  Sender: FDA-Public Use
  Company Number: IT-ACCORD-184523

PATIENT
  Age: 63 Year
  Weight: 77 kg

DRUGS (1)
  1. PACLITAXEL ACCORD HEALTHCARE ITALY [Suspect]
     Active Substance: PACLITAXEL
     Indication: ENDOMETRIAL CANCER
     Route: 041
     Dates: start: 20200525

REACTIONS (2)
  - Spinal pain [Recovering/Resolving]
  - Back pain [Recovering/Resolving]

NARRATIVE: CASE EVENT DATE: 20200525
